FAERS Safety Report 11603919 (Version 1)
Quarter: 2015Q4

REPORT INFORMATION
  Report Type: Spontaneous
  Country: US (occurrence: None)
  Receive Date: 20151006
  Receipt Date: 20151006
  Transmission Date: 20160304
  Serious: Yes (Hospitalization)
  Sender: FDA-Public Use
  Company Number: None

PATIENT
  Age: 62 Year
  Sex: Male
  Weight: 65 kg

DRUGS (1)
  1. DISULFIRAM. [Suspect]
     Active Substance: DISULFIRAM
     Indication: ALCOHOLISM
     Route: 048
     Dates: start: 20141219, end: 20150918

REACTIONS (13)
  - Substance use [None]
  - Headache [None]
  - Nausea [None]
  - Fall [None]
  - Postictal state [None]
  - Syncope [None]
  - Mental status changes [None]
  - Vasodilatation [None]
  - Vomiting [None]
  - Seizure [None]
  - Hypotension [None]
  - Lethargy [None]
  - Blood alcohol increased [None]

NARRATIVE: CASE EVENT DATE: 20150918
